FAERS Safety Report 6124657-2 (Version None)
Quarter: 2009Q1

REPORT INFORMATION
  Report Type: 
  Country: None (occurrence: None)
  Receive Date: 20090319
  Receipt Date: 20090317
  Transmission Date: 20090719
  Serious: Yes (Death)
  Sender: FDA-Public Use
  Company Number: B0565683A

PATIENT
  Age: 55 Year
  Sex: Male

DRUGS (2)
  1. COMBIVIR [Suspect]
     Indication: PROPHYLAXIS AGAINST HIV INFECTION
     Route: 048
     Dates: start: 20050416, end: 20090306
  2. EFAVIRENZ [Suspect]
     Indication: PROPHYLAXIS AGAINST HIV INFECTION
     Dosage: 600MG PER DAY
     Route: 048
     Dates: start: 20050416, end: 20090306

REACTIONS (4)
  - DEATH [None]
  - DEPRESSED LEVEL OF CONSCIOUSNESS [None]
  - HYPERHIDROSIS [None]
  - RESPIRATION ABNORMAL [None]
